APPROVED DRUG PRODUCT: NITHIODOTE
Active Ingredient: SODIUM NITRITE; SODIUM THIOSULFATE
Strength: 300MG/10ML(30MG/ML),N/A;N/A,12.5GM/50ML(250MG/ML)
Dosage Form/Route: SOLUTION, SOLUTION;INTRAVENOUS, INTRAVENOUS
Application: N201444 | Product #001
Applicant: HOPE PHARMACEUTICALS
Approved: Jan 14, 2011 | RLD: Yes | RS: Yes | Type: RX

PATENTS:
Patent 11753301 | Expires: Feb 10, 2030
Patent 9345724 | Expires: Jul 7, 2030
Patent 9687506 | Expires: Feb 10, 2030
Patent 9687506 | Expires: Feb 10, 2030
Patent 10479686 | Expires: Jul 7, 2030
Patent 12304813 | Expires: Feb 10, 2030
Patent 9585912 | Expires: Jul 7, 2030
Patent 8568793 | Expires: Dec 24, 2031
Patent 8496973 | Expires: Mar 29, 2031